FAERS Safety Report 20896286 (Version 2)
Quarter: 2022Q2

REPORT INFORMATION
  Report Type: Spontaneous
  Country: JP (occurrence: JP)
  Receive Date: 20220531
  Receipt Date: 20220610
  Transmission Date: 20220721
  Serious: Yes (Death, Other)
  Sender: FDA-Public Use
  Company Number: JP-BAYER-2022A073533

PATIENT
  Age: 74 Year
  Sex: Female

DRUGS (5)
  1. IOPAMIRON [Suspect]
     Active Substance: IOPAMIDOL
     Indication: Computerised tomogram abdomen
     Dosage: 94ML, ONCE, LEFT FOREARM
     Route: 042
     Dates: start: 20220523, end: 20220523
  2. BELSOMRA [Concomitant]
     Active Substance: SUVOREXANT
     Dosage: DAILY DOSE 1 TABLET
     Route: 048
  3. ELIQUIS [Concomitant]
     Active Substance: APIXABAN
     Dosage: DAILY DOSE 1 TABLET
     Route: 048
  4. ATENOLOL [Concomitant]
     Active Substance: ATENOLOL
     Dosage: DAILY DOSE 1 TABLET
     Route: 048
  5. ATORVASTATIN [Concomitant]
     Active Substance: ATORVASTATIN
     Dosage: DAILY DOSE 1 TABLET
     Route: 048

REACTIONS (2)
  - Anaphylactic shock [Fatal]
  - Atrial fibrillation [Fatal]

NARRATIVE: CASE EVENT DATE: 20220523
